FAERS Safety Report 5169887-1 (Version None)
Quarter: 2006Q4

REPORT INFORMATION
  Report Type: 
  Country: None (occurrence: None)
  Receive Date: 20061212
  Receipt Date: 20061130
  Transmission Date: 20070319
  Serious: Yes (Hospitalization)
  Sender: FDA-Public Use
  Company Number: US-AVENTIS-200622219GDDC

PATIENT
  Age: 53 Year
  Sex: Male
  Weight: 45.4 kg

DRUGS (2)
  1. DOCETAXEL [Suspect]
     Indication: SQUAMOUS CELL CARCINOMA
     Route: 042
     Dates: start: 20061122, end: 20061122
  2. CODE UNBROKEN [Suspect]
     Indication: SQUAMOUS CELL CARCINOMA
     Route: 048
     Dates: start: 20061012, end: 20061122

REACTIONS (29)
  - ALKALOSIS [None]
  - ANAEMIA [None]
  - ATRIAL FIBRILLATION [None]
  - BACTERAEMIA [None]
  - BLOOD ALBUMIN DECREASED [None]
  - BLOOD BICARBONATE INCREASED [None]
  - BLOOD PH INCREASED [None]
  - BLOOD PHOSPHORUS DECREASED [None]
  - CACHEXIA [None]
  - CARBON DIOXIDE INCREASED [None]
  - CLOSTRIDIAL INFECTION [None]
  - DYSPNOEA [None]
  - HAEMATOCRIT DECREASED [None]
  - HAEMOGLOBIN DECREASED [None]
  - HYPOCALCAEMIA [None]
  - HYPOKALAEMIA [None]
  - HYPOPHOSPHATAEMIA [None]
  - HYPOTENSION [None]
  - HYPOXIA [None]
  - INFECTION [None]
  - NECK PAIN [None]
  - NEUTROPENIA [None]
  - NEUTROPHIL COUNT [None]
  - OXYGEN SATURATION DECREASED [None]
  - PNEUMONIA [None]
  - PSEUDOMONAS INFECTION [None]
  - SEPTIC SHOCK [None]
  - STAPHYLOCOCCAL INFECTION [None]
  - WOUND INFECTION [None]
